FAERS Safety Report 9315689 (Version 1)
Quarter: 2013Q2

REPORT INFORMATION
  Report Type: Spontaneous
  Country: US (occurrence: US)
  Receive Date: 20130529
  Receipt Date: 20130529
  Transmission Date: 20140414
  Serious: Yes (Hospitalization)
  Sender: FDA-Public Use
  Company Number: US-ELI_LILLY_AND_COMPANY-US201302002996

PATIENT
  Age: 80 Year
  Sex: Female

DRUGS (3)
  1. FORTEO [Suspect]
     Indication: OSTEOPOROSIS
     Dosage: UNK, QD
     Route: 065
  2. FORTEO [Suspect]
     Dosage: UNK, QD
     Route: 065
  3. FORTEO [Suspect]
     Dosage: UNK, QD

REACTIONS (8)
  - Anxiety [Unknown]
  - Decreased appetite [Unknown]
  - Thinking abnormal [Unknown]
  - Dry mouth [Unknown]
  - Blood glucose abnormal [Unknown]
  - Malaise [Unknown]
  - Central obesity [Unknown]
  - Feeling abnormal [Unknown]
